FAERS Safety Report 11333530 (Version 1)
Quarter: 2015Q3

REPORT INFORMATION
  Report Type: Spontaneous
  Country: US (occurrence: US)
  Receive Date: 20150803
  Receipt Date: 20150803
  Transmission Date: 20151125
  Serious: No
  Sender: FDA-Public Use
  Company Number: US-ELI_LILLY_AND_COMPANY-US200801004627

PATIENT
  Age: 50 Year
  Sex: Female
  Weight: 74.83 kg

DRUGS (4)
  1. ZYPREXA [Suspect]
     Active Substance: OLANZAPINE
  2. ABILIFY [Concomitant]
     Active Substance: ARIPIPRAZOLE
     Dates: start: 200707
  3. PROZAC [Concomitant]
     Active Substance: FLUOXETINE HYDROCHLORIDE
     Dates: start: 200712
  4. WELLBUTRIN [Concomitant]
     Active Substance: BUPROPION HYDROCHLORIDE
     Dates: start: 200709

REACTIONS (6)
  - Blood cholesterol abnormal [Unknown]
  - Blood triglycerides increased [Unknown]
  - Metabolic disorder [Unknown]
  - Obesity [Unknown]
  - Diabetes mellitus [Not Recovered/Not Resolved]
  - Mumps [Unknown]

NARRATIVE: CASE EVENT DATE: 200706
